FAERS Safety Report 10410027 (Version 2)
Quarter: 2014Q3

REPORT INFORMATION
  Report Type: Spontaneous
  Country: US (occurrence: None)
  Receive Date: 20140627
  Receipt Date: 20140826
  Transmission Date: 20150326
  Serious: Yes (Hospitalization, Other)
  Sender: FDA-Public Use
  Company Number: AUR-APL-2014-06157

PATIENT
  Age: 17 Year
  Sex: Female

DRUGS (2)
  1. LEVETIRACTAM [Suspect]
     Active Substance: LEVETIRACETAM
     Indication: FATIGUE
  2. LEVETIRACTAM [Suspect]
     Active Substance: LEVETIRACETAM
     Indication: CONVULSION

REACTIONS (8)
  - Tubulointerstitial nephritis [None]
  - Hydronephrosis [None]
  - Renal failure [None]
  - Eosinophilic cystitis [None]
  - Eosinophilia [None]
  - Leukocyturia [None]
  - Flank pain [None]
  - Fatigue [None]
